FAERS Safety Report 5139844-X (Version None)
Quarter: 2006Q4

REPORT INFORMATION
  Report Type: 
  Country: None (occurrence: None)
  Receive Date: 20061025
  Receipt Date: 20061025
  Transmission Date: 20070319
  Serious: Yes (Other)
  Sender: FDA-Public Use
  Company Number: None

PATIENT
  Age: 83 Year
  Sex: Male
  Weight: 69.5 kg

DRUGS (12)
  1. FLUORESCEIN [Suspect]
     Indication: ANGIOGRAM
     Dosage: 500 MG IVP OVER 5-7 SEC X 1 DOSE AT 3:35 PM
     Route: 042
  2. LOSARTAN POSTASSIUM [Concomitant]
  3. CLONAZEPAM [Concomitant]
  4. OCUVITE [Concomitant]
  5. BUPROPION HCL [Concomitant]
  6. CLONIDINE [Concomitant]
  7. HYDROCHLOROTHIAZIDE [Concomitant]
  8. POTASSIUM CHLORIDE [Concomitant]
  9. PANTOPRAZOLE SODIUM [Concomitant]
  10. XALATAN [Concomitant]
  11. TROPICAMIDE [Concomitant]
  12. PHENYLEPHRINE [Concomitant]

REACTIONS (12)
  - ASTHENIA [None]
  - BLOOD PRESSURE INCREASED [None]
  - CHROMATURIA [None]
  - DEHYDRATION [None]
  - DIZZINESS [None]
  - LOSS OF CONSCIOUSNESS [None]
  - ORAL INTAKE REDUCED [None]
  - PALLOR [None]
  - PERIORBITAL OEDEMA [None]
  - PRURITUS [None]
  - RASH [None]
  - RESUSCITATION [None]
